FAERS Safety Report 8238508-3 (Version None)
Quarter: 2012Q1

REPORT INFORMATION
  Report Type: 
  Country: None (occurrence: None)
  Receive Date: 20120327
  Receipt Date: 20120323
  Transmission Date: 20120608
  Serious: No
  Sender: FDA-Public Use
  Company Number: US-TEVA-329892USA

PATIENT
  Sex: Female

DRUGS (1)
  1. COPAXONE [Suspect]
     Indication: MULTIPLE SCLEROSIS
     Dosage: 20 MILLIGRAM;
     Route: 058
     Dates: start: 20080107

REACTIONS (4)
  - INJECTION SITE ERYTHEMA [None]
  - FLUSHING [None]
  - IMMEDIATE POST-INJECTION REACTION [None]
  - BACK PAIN [None]
